FAERS Safety Report 4283323-9 (Version None)
Quarter: 2004Q1

REPORT INFORMATION
  Report Type: 
  Country: None (occurrence: None)
  Receive Date: 20040129
  Receipt Date: 20040115
  Transmission Date: 20041129
  Serious: Yes (Other)
  Sender: FDA-Public Use
  Company Number: 2004001289

PATIENT
  Sex: Male
  Weight: 79 kg

DRUGS (3)
  1. SILDENAFIL (SILDENAFIL) [Suspect]
     Indication: PULMONARY HYPERTENSION
     Dosage: 150 MG (TID), ORAL
     Route: 048
     Dates: start: 20031122
  2. FUROSEMIDE [Concomitant]
  3. DICOUMAROL (DICOUMAROL) [Concomitant]

REACTIONS (7)
  - ABDOMINAL PAIN UPPER [None]
  - GASTROINTESTINAL HAEMORRHAGE [None]
  - HAEMATOMA [None]
  - HIATUS HERNIA [None]
  - OEDEMA [None]
  - OESOPHAGITIS [None]
  - REFLUX GASTRITIS [None]
